FAERS Safety Report 23956957 (Version 1)
Quarter: 2024Q2

REPORT INFORMATION
  Report Type: Spontaneous
  Country: US (occurrence: None)
  Receive Date: 20240608
  Receipt Date: 20240608
  Transmission Date: 20240716
  Serious: Yes (Hospitalization)
  Sender: FDA-Public Use
  Company Number: None

PATIENT
  Age: 50 Year
  Sex: Female

DRUGS (1)
  1. RITUXIMAB-PVVR [Suspect]
     Active Substance: RITUXIMAB-PVVR
     Indication: Interstitial lung disease
     Route: 042
     Dates: start: 20200801, end: 20240209

REACTIONS (4)
  - Malaise [None]
  - Pyrexia [None]
  - Cough [None]
  - Lung opacity [None]

NARRATIVE: CASE EVENT DATE: 20240410
